FAERS Safety Report 19947628 (Version 1)
Quarter: 2021Q4

REPORT INFORMATION
  Report Type: Spontaneous
  Country: US (occurrence: US)
  Receive Date: 20211013
  Receipt Date: 20211013
  Transmission Date: 20220303
  Serious: Yes (Other)
  Sender: FDA-Public Use
  Company Number: US-HIKMA PHARMACEUTICALS USA INC.-US-H14001-21-01020

PATIENT
  Sex: Male

DRUGS (1)
  1. INFUMORPH [Suspect]
     Active Substance: MORPHINE SULFATE
     Indication: Product used for unknown indication
     Route: 037
     Dates: start: 20160808

REACTIONS (1)
  - Drug withdrawal syndrome [Unknown]
